FAERS Safety Report 8601050-1 (Version None)
Quarter: 2012Q3

REPORT INFORMATION
  Report Type: 
  Country: None (occurrence: None)
  Receive Date: 20120817
  Receipt Date: 20120809
  Transmission Date: 20120928
  Serious: Yes (Death)
  Sender: FDA-Public Use
  Company Number: JP-SANOFI-AVENTIS-2012SA004730

PATIENT
  Age: 69 Year
  Sex: Female
  Weight: 42 kg

DRUGS (2)
  1. TAXOTERE [Suspect]
     Route: 065
     Dates: start: 20120112, end: 20120112
  2. TRASTUZUMAB [Concomitant]
     Indication: BREAST CANCER STAGE IV
     Dates: start: 20111101

REACTIONS (3)
  - RESPIRATORY FAILURE [None]
  - HYPOXIA [None]
  - DEPRESSED LEVEL OF CONSCIOUSNESS [None]
